FAERS Safety Report 12216121 (Version 1)
Quarter: 2016Q1

REPORT INFORMATION
  Report Type: Spontaneous
  Country: US (occurrence: US)
  Receive Date: 20160329
  Receipt Date: 20160329
  Transmission Date: 20160526
  Serious: No
  Sender: FDA-Public Use
  Company Number: US-009507513-1603USA012611

PATIENT
  Age: 24 Year
  Sex: Female
  Weight: 70.3 kg

DRUGS (2)
  1. VALTRAX [Concomitant]
  2. NEXPLANON [Suspect]
     Active Substance: ETONOGESTREL
     Dosage: DOSE/FREQUENCY: EVERY THREE YEARS; LEFT ARM
     Route: 059
     Dates: start: 20150731

REACTIONS (3)
  - Galactorrhoea [Unknown]
  - Haemorrhage [Unknown]
  - Rash generalised [Unknown]

NARRATIVE: CASE EVENT DATE: 20150731
